FAERS Safety Report 8043989-4 (Version None)
Quarter: 2012Q1

REPORT INFORMATION
  Report Type: 
  Country: None (occurrence: None)
  Receive Date: 20120113
  Receipt Date: 20120105
  Transmission Date: 20120608
  Serious: Yes (Other)
  Sender: FDA-Public Use
  Company Number: JP-AMGEN-JPNSP2011060263

PATIENT
  Age: 73 Year
  Sex: Female
  Weight: 50 kg

DRUGS (9)
  1. ENBREL [Suspect]
     Indication: RHEUMATOID ARTHRITIS
     Dosage: 25 MG, WEEKLY
     Dates: start: 20080305
  2. ONE-ALPHA [Concomitant]
     Indication: OSTEOPOROSIS
     Dosage: 0.5 UG, 1X/DAY
  3. ENBREL [Suspect]
     Dosage: 25 MG, 2X/WEEK
     Dates: start: 20080818
  4. ENBREL [Suspect]
     Dosage: 25 MG, WEEKLY
     Dates: start: 20100901, end: 20110730
  5. OMEPRAZOLE [Concomitant]
     Indication: PROPHYLAXIS AGAINST GASTROINTESTINAL ULCER
     Dosage: 10 MG, 1X/DAY
     Route: 048
  6. ENBREL [Suspect]
     Dosage: 25 MG, WEEKLY
     Dates: start: 20081215, end: 20100801
  7. PREDNISOLONE [Concomitant]
     Indication: RHEUMATOID ARTHRITIS
     Dosage: 3.5 MG, 2X/DAY
     Route: 048
  8. ALENDRONATE SODIUM [Concomitant]
     Indication: OSTEOPOROSIS
     Dosage: 35 MG, WEEKLY
  9. VITAMEDIN                          /00274301/ [Concomitant]
     Indication: HYPOVITAMINOSIS
     Dosage: UNK

REACTIONS (4)
  - RHEUMATOID VASCULITIS [None]
  - PEMPHIGOID [None]
  - AUTOIMMUNE DISORDER [None]
  - LEUKOCYTOCLASTIC VASCULITIS [None]
